FAERS Safety Report 20462024 (Version 1)
Quarter: 2022Q1

REPORT INFORMATION
  Report Type: Spontaneous
  Country: DK (occurrence: None)
  Receive Date: 20220211
  Receipt Date: 20220211
  Transmission Date: 20220423
  Serious: Yes (Other)
  Sender: FDA-Public Use
  Company Number: DK-Merck Healthcare KGaA-9298489

PATIENT
  Age: 62 Year
  Sex: Male

DRUGS (1)
  1. AVELUMAB [Suspect]
     Active Substance: AVELUMAB
     Indication: Product used for unknown indication
     Dates: start: 202110

REACTIONS (5)
  - Neuropathy peripheral [Unknown]
  - Myelitis [Unknown]
  - Radiculopathy [Unknown]
  - Gait disturbance [Unknown]
  - Sensory disturbance [Unknown]
